FAERS Safety Report 17461630 (Version 1)
Quarter: 2020Q1

REPORT INFORMATION
  Report Type: Spontaneous
  Country: US (occurrence: US)
  Receive Date: 20200213
  Receipt Date: 20200213
  Transmission Date: 20200409
  Serious: No
  Sender: FDA-Public Use
  Company Number: None

PATIENT
  Age: 82 Year
  Sex: Male
  Weight: 83 kg

DRUGS (2)
  1. IV IMMUNE GLOBULIN (IVIG) [Suspect]
     Active Substance: HUMAN IMMUNOGLOBULIN G
     Indication: HYPOGAMMAGLOBULINAEMIA
  2. GLOBULIN, IMMUNE PLASMA BOVINE (ENTERAGAM) [Suspect]
     Active Substance: DIETARY SUPPLEMENT
     Indication: CHRONIC LYMPHOCYTIC LEUKAEMIA
     Dates: start: 20171026

REACTIONS (4)
  - Hypotension [None]
  - Chills [None]
  - Respiratory depression [None]
  - Bradycardia [None]

NARRATIVE: CASE EVENT DATE: 20190916
